FAERS Safety Report 26212575 (Version 1)
Quarter: 2025Q4

REPORT INFORMATION
  Report Type: Spontaneous
  Country: US (occurrence: US)
  Receive Date: 20251230
  Receipt Date: 20251230
  Transmission Date: 20260119
  Serious: No
  Sender: ROCHE
  Company Number: US-ROCHE-10000467545

PATIENT
  Age: 25 Year
  Sex: Male
  Weight: 58.96 kg

DRUGS (2)
  1. XOLAIR [Suspect]
     Active Substance: OMALIZUMAB
     Indication: Rubber sensitivity
     Dosage: 20-DEC-2025
     Route: 058
     Dates: start: 2024
  2. XOLAIR [Suspect]
     Active Substance: OMALIZUMAB
     Dosage: STRENGTH: 300MG/2ML
     Route: 058
     Dates: start: 202503

REACTIONS (6)
  - Product dose omission issue [Unknown]
  - Injection site pain [Not Recovered/Not Resolved]
  - Off label use [Unknown]
  - Needle issue [Unknown]
  - Wrong technique in device usage process [Unknown]
  - Accidental exposure to product [Unknown]

NARRATIVE: CASE EVENT DATE: 20240101
